FAERS Safety Report 24226701 (Version 1)
Quarter: 2024Q3

REPORT INFORMATION
  Report Type: Spontaneous
  Country: CA (occurrence: None)
  Receive Date: 20240820
  Receipt Date: 20240820
  Transmission Date: 20241017
  Serious: Yes (Other)
  Sender: ASTRAZENECA
  Company Number: 2020SF31274

PATIENT
  Age: 57 Year
  Sex: Male

DRUGS (5)
  1. SYMBICORT [Suspect]
     Active Substance: BUDESONIDE\FORMOTEROL FUMARATE DIHYDRATE
     Indication: Product used for unknown indication
     Dosage: UNKNOWN, 200 TURBUHALER 200-6MCG,/ACTUACTION 2 TIMES DAILY TWO TIMES A DAY
     Route: 055
  2. CEFUROXIME [Suspect]
     Active Substance: CEFUROXIME
     Indication: Product used for unknown indication
  3. CHOLINE BITARTRATE\CYSTINE [Suspect]
     Active Substance: CHOLINE BITARTRATE\CYSTINE
     Indication: Product used for unknown indication
     Dosage: UNKNOWN, 1/2LU 330 QUALITY 1 INHALER REFILLS5 PRINTED
  4. MEPOLIZUMAB [Suspect]
     Active Substance: MEPOLIZUMAB
     Indication: Asthma
     Route: 042
     Dates: start: 20170328
  5. PREDNISONE [Suspect]
     Active Substance: PREDNISONE
     Indication: Product used for unknown indication

REACTIONS (5)
  - Chest discomfort [Unknown]
  - Deafness neurosensory [Unknown]
  - Gastrointestinal disorder [Unknown]
  - Reversible airways obstruction [Unknown]
  - Deafness neurosensory [Unknown]
